FAERS Safety Report 9580420 (Version 1)
Quarter: 2013Q4

REPORT INFORMATION
  Report Type: Spontaneous
  Country: GB (occurrence: GB)
  Receive Date: 20131002
  Receipt Date: 20131002
  Transmission Date: 20140711
  Serious: Yes (Other)
  Sender: FDA-Public Use
  Company Number: GB-SA-2013SA095706

PATIENT
  Age: 41 Year
  Sex: Female

DRUGS (7)
  1. ISONIAZID [Suspect]
     Indication: LYMPH NODE TUBERCULOSIS
     Route: 065
  2. ISONIAZID [Suspect]
     Indication: LYMPH NODE TUBERCULOSIS
     Route: 065
  3. ETHAMBUTOL [Suspect]
     Indication: LYMPH NODE TUBERCULOSIS
     Route: 065
  4. ETHAMBUTOL [Suspect]
     Indication: LYMPH NODE TUBERCULOSIS
     Route: 065
  5. PYRAZINAMIDE [Suspect]
     Indication: LYMPH NODE TUBERCULOSIS
     Route: 065
  6. RIFAMPICIN [Suspect]
     Indication: LYMPH NODE TUBERCULOSIS
     Route: 065
  7. RIFABUTIN [Suspect]
     Indication: LYMPH NODE TUBERCULOSIS
     Route: 065

REACTIONS (13)
  - Drug reaction with eosinophilia and systemic symptoms [Recovering/Resolving]
  - Pyrexia [Recovering/Resolving]
  - Rash maculo-papular [Recovering/Resolving]
  - Myalgia [Recovering/Resolving]
  - Lethargy [Recovering/Resolving]
  - C-reactive protein increased [Recovering/Resolving]
  - Alanine aminotransferase increased [Recovering/Resolving]
  - Gamma-glutamyltransferase increased [Recovering/Resolving]
  - Lymphocytosis [Recovering/Resolving]
  - Monocytosis [Recovering/Resolving]
  - Eosinophilia [Recovering/Resolving]
  - Aspartate aminotransferase increased [Recovering/Resolving]
  - Blood alkaline phosphatase increased [Recovering/Resolving]
